FAERS Safety Report 4324198-9 (Version None)
Quarter: 2004Q1

REPORT INFORMATION
  Report Type: 
  Country: None (occurrence: None)
  Receive Date: 20040323
  Receipt Date: 20040308
  Transmission Date: 20041129
  Serious: Yes (Hospitalization)
  Sender: FDA-Public Use
  Company Number: 04P-163-0252755-00

PATIENT
  Age: 9 Year
  Sex: Female
  Weight: 22.6799 kg

DRUGS (5)
  1. ULTANE [Suspect]
     Indication: INDUCTION OF ANAESTHESIA
     Dosage: 4 %, INHALATION  : 6% , INHALATION
     Route: 055
     Dates: start: 20040305, end: 20040305
  2. ULTANE [Suspect]
     Indication: MAINTENANCE OF ANAESTHESIA
     Dosage: 4 %, INHALATION  : 6% , INHALATION
     Route: 055
     Dates: start: 20040305, end: 20040305
  3. PROPOFOL [Concomitant]
  4. SALINE IRRIGATION [Concomitant]
  5. OXYGEN [Concomitant]

REACTIONS (5)
  - BREATH HOLDING [None]
  - ERYTHEMA [None]
  - MUSCLE TWITCHING [None]
  - PROCEDURAL COMPLICATION [None]
  - THERMAL BURN [None]
